FAERS Safety Report 13966800 (Version 1)
Quarter: 2017Q3

REPORT INFORMATION
  Report Type: Spontaneous
  Country: US (occurrence: US)
  Receive Date: 20170913
  Receipt Date: 20170913
  Transmission Date: 20171128
  Serious: Yes (Other)
  Sender: FDA-Public Use
  Company Number: None

PATIENT
  Age: 47 Year
  Sex: Female
  Weight: 54.9 kg

DRUGS (8)
  1. BUPROPION HCL XL 150MG TABLET [Suspect]
     Active Substance: BUPROPION HYDROCHLORIDE
     Indication: DEPRESSION
     Dosage: ?          QUANTITY:90 TABLET(S);?
     Route: 048
     Dates: start: 20170324, end: 20170913
  2. ADDERALL [Concomitant]
     Active Substance: AMPHETAMINE ASPARTATE\AMPHETAMINE SULFATE\DEXTROAMPHETAMINE SACCHARATE\DEXTROAMPHETAMINE SULFATE
  3. PROBIOTICS [Concomitant]
     Active Substance: PROBIOTICS NOS
  4. XANAX [Concomitant]
     Active Substance: ALPRAZOLAM
  5. PAPAYA ENZYMES [Concomitant]
  6. TIZANIDINE. [Concomitant]
     Active Substance: TIZANIDINE
  7. VITAMIN C [Concomitant]
     Active Substance: ASCORBIC ACID
  8. ADVIL [Concomitant]
     Active Substance: IBUPROFEN

REACTIONS (8)
  - Vertigo [None]
  - Product quality issue [None]
  - Feeling hot [None]
  - Cold sweat [None]
  - Headache [None]
  - Toxicity to various agents [None]
  - Nausea [None]
  - Vomiting [None]

NARRATIVE: CASE EVENT DATE: 20170913
